FAERS Safety Report 8431257-8 (Version None)
Quarter: 2012Q2

REPORT INFORMATION
  Report Type: 
  Country: None (occurrence: None)
  Receive Date: 20120613
  Receipt Date: 20120531
  Transmission Date: 20120825
  Serious: Yes (Life-Threatening, Hospitalization, Other)
  Sender: FDA-Public Use
  Company Number: US-PAR PHARMACEUTICAL, INC-2012SCPR004440

PATIENT

DRUGS (1)
  1. BUPROPION HCL [Suspect]
     Indication: PRODUCT USED FOR UNKNOWN INDICATION
     Dosage: UNK, UNKNOWN
     Route: 048

REACTIONS (5)
  - TACHYCARDIA [None]
  - HAEMODYNAMIC INSTABILITY [None]
  - TOXICITY TO VARIOUS AGENTS [None]
  - VENTRICULAR TACHYCARDIA [None]
  - GRAND MAL CONVULSION [None]
